FAERS Safety Report 10565363 (Version 1)
Quarter: 2014Q4

REPORT INFORMATION
  Report Type: Report from Study
  Country: AU (occurrence: AU)
  Receive Date: 20141105
  Receipt Date: 20141105
  Transmission Date: 20150529
  Serious: Yes (Hospitalization)
  Sender: FDA-Public Use
  Company Number: PHHY2014AU142667

PATIENT
  Age: 39 Year
  Sex: Male
  Weight: 74 kg

DRUGS (8)
  1. VALPROATE [Concomitant]
     Active Substance: VALPROATE SODIUM
     Indication: PRODUCT USED FOR UNKNOWN INDICATION
     Dosage: 500 MG, BID
     Route: 065
  2. FLUDROCORTISONE [Concomitant]
     Active Substance: FLUDROCORTISONE
     Indication: PRODUCT USED FOR UNKNOWN INDICATION
     Dosage: 100 UG, QD
     Route: 065
  3. CORTISON ACETATE [Concomitant]
     Indication: ADDISON^S DISEASE
     Dosage: 2 DF, (50MG MORNING, 25MG NIGHT)
     Route: 065
  4. CLOZARIL [Suspect]
     Active Substance: CLOZAPINE
     Indication: SCHIZOPHRENIA
     Dosage: 75 MG, UNK
     Route: 065
     Dates: start: 20140929
  5. ESOMEPRAZOLE [Concomitant]
     Active Substance: ESOMEPRAZOLE
     Indication: PRODUCT USED FOR UNKNOWN INDICATION
     Dosage: 20 MG, QD
     Route: 065
  6. ATORVASTATIN [Concomitant]
     Active Substance: ATORVASTATIN
     Indication: PRODUCT USED FOR UNKNOWN INDICATION
     Dosage: 20 MG, QD
     Route: 065
  7. CLOZARIL [Suspect]
     Active Substance: CLOZAPINE
     Indication: PSYCHOTIC DISORDER
  8. ACETAMINOPHEN. [Concomitant]
     Active Substance: ACETAMINOPHEN
     Indication: PRODUCT USED FOR UNKNOWN INDICATION
     Dosage: 1 G, TID
     Route: 065

REACTIONS (19)
  - Productive cough [Unknown]
  - Pyrexia [Unknown]
  - Chest pain [Unknown]
  - Delusion [Unknown]
  - Blood triglycerides increased [Unknown]
  - Aggression [Unknown]
  - Bacteraemia [Unknown]
  - Dyspnoea [Unknown]
  - Blood cholesterol increased [Unknown]
  - Red blood cell count decreased [Unknown]
  - Mitral valve incompetence [Unknown]
  - Blood prolactin increased [Unknown]
  - Hypertension [Unknown]
  - Haemoglobin decreased [Unknown]
  - Tooth abscess [Unknown]
  - Alpha haemolytic streptococcal infection [Unknown]
  - Mitral valve disease [Unknown]
  - Left atrial dilatation [Unknown]
  - Tachycardia [Unknown]

NARRATIVE: CASE EVENT DATE: 20140929
